FAERS Safety Report 4935350-3 (Version None)
Quarter: 2006Q1

REPORT INFORMATION
  Report Type: 
  Country: None (occurrence: None)
  Receive Date: 20060127
  Receipt Date: 20051104
  Transmission Date: 20060701
  Serious: Yes (Other)
  Sender: FDA-Public Use
  Company Number: 2005152040

PATIENT
  Age: 65 Year
  Sex: Female
  Weight: 97.977 kg

DRUGS (12)
  1. LYRICA [Suspect]
     Indication: BACK PAIN
     Dosage: 150 MG (50 MG,3 IN 1 D)
     Dates: start: 20051001
  2. LYRICA [Suspect]
     Indication: DIABETIC NEUROPATHY
     Dosage: 150 MG (50 MG,3 IN 1 D)
     Dates: start: 20051001
  3. AVANDIA [Concomitant]
  4. METFORMIN HCL [Concomitant]
  5. AMARYL [Concomitant]
  6. ALTACE [Concomitant]
  7. LEVOXYL [Concomitant]
  8. ZETIA [Concomitant]
  9. HYDROCODONE BITARTRATE [Concomitant]
  10. NORTRIPTYLINE (NORTRIPTYLINE) [Concomitant]
  11. FUROSEMIDE [Suspect]
  12. POTASSIUM (POTASSIUM) [Concomitant]

REACTIONS (1)
  - WEIGHT INCREASED [None]
